FAERS Safety Report 19172271 (Version 1)
Quarter: 2021Q2

REPORT INFORMATION
  Report Type: Spontaneous
  Country: US (occurrence: US)
  Receive Date: 20210422
  Receipt Date: 20210422
  Transmission Date: 20210717
  Serious: No
  Sender: FDA-Public Use
  Company Number: None

PATIENT
  Sex: Male

DRUGS (1)
  1. HUMIRA [Suspect]
     Active Substance: ADALIMUMAB
     Indication: PSORIATIC ARTHROPATHY
     Route: 058
     Dates: start: 20201031, end: 202011

REACTIONS (7)
  - Headache [None]
  - Pruritus [None]
  - Burning sensation [None]
  - Pain [None]
  - Pyrexia [None]
  - Seizure [None]
  - Psoriatic arthropathy [None]
